FAERS Safety Report 5987114-X (Version None)
Quarter: 2008Q4

REPORT INFORMATION
  Report Type: 
  Country: None (occurrence: None)
  Receive Date: 20081209
  Receipt Date: 20081128
  Transmission Date: 20090506
  Serious: Yes (Other)
  Sender: FDA-Public Use
  Company Number: FR-ROCHE-600094

PATIENT
  Age: 82 Year
  Sex: Female

DRUGS (4)
  1. BONIVA [Suspect]
     Indication: DRUG USE FOR UNKNOWN INDICATION
     Route: 048
  2. ARAVA [Concomitant]
     Indication: RHEUMATOID ARTHRITIS
  3. FOSAVANCE [Concomitant]
  4. CORTICOSTEROIDS [Concomitant]
     Dosage: DRUG NAME: CORTICOIDS

REACTIONS (2)
  - OSTEONECROSIS [None]
  - SALIVARY GLAND FISTULA [None]
